FAERS Safety Report 17318555 (Version 1)
Quarter: 2020Q1

REPORT INFORMATION
  Report Type: Spontaneous
  Country: US (occurrence: US)
  Receive Date: 20200124
  Receipt Date: 20200124
  Transmission Date: 20200409
  Serious: Yes (Other)
  Sender: FDA-Public Use
  Company Number: US-P+L DEVELOPMENT, LLC-2079400

PATIENT
  Sex: Female

DRUGS (1)
  1. TRIPLE ANTIBIOTIC (BACITRACIN ZINC\NEOMYCIN SULFATE\POLYMYXIN B SULFATE) [Suspect]
     Active Substance: BACITRACIN ZINC\NEOMYCIN SULFATE\POLYMYXIN B SULFATE
     Indication: PSEUDOFOLLICULITIS

REACTIONS (2)
  - Skin discolouration [None]
  - Rash [None]
